FAERS Safety Report 9016005 (Version 2)
Quarter: 2013Q1

REPORT INFORMATION
  Report Type: Spontaneous
  Country: DE (occurrence: DE)
  Receive Date: 20130116
  Receipt Date: 20130130
  Transmission Date: 20140127
  Serious: Yes (Death, Hospitalization)
  Sender: FDA-Public Use
  Company Number: DE-INCYTE CORPORATION-2013IN000089

PATIENT
  Age: 75 Year
  Sex: Female

DRUGS (1)
  1. JAKAVI [Suspect]
     Indication: MYELOPROLIFERATIVE DISORDER
     Dosage: 40 MG, PER DAY
     Route: 048
     Dates: start: 20121011, end: 20121130

REACTIONS (1)
  - Sepsis [Fatal]
